FAERS Safety Report 5648356-6 (Version None)
Quarter: 2008Q1

REPORT INFORMATION
  Report Type: 
  Country: None (occurrence: None)
  Receive Date: 20080303
  Receipt Date: 20080303
  Transmission Date: 20080703
  Serious: Yes (Other)
  Sender: FDA-Public Use
  Company Number: None

PATIENT
  Sex: Male

DRUGS (11)
  1. COREG [Suspect]
     Indication: CARDIAC FAILURE CONGESTIVE
     Dosage: 12.5 BID PO IN PAST MONTH
     Route: 048
  2. COREG [Suspect]
     Indication: CARDIOMYOPATHY
     Dosage: 12.5 BID PO IN PAST MONTH
     Route: 048
  3. COREG [Suspect]
     Indication: CORONARY ARTERY DISEASE
     Dosage: 12.5 BID PO IN PAST MONTH
     Route: 048
  4. LASIX [Concomitant]
  5. PREVACID [Concomitant]
  6. BENICAR [Concomitant]
  7. TRICOR [Concomitant]
  8. KLOR-CON [Concomitant]
  9. METFORMIN HCL [Concomitant]
  10. LANOXIN [Concomitant]
  11. GLUCOTROL XL [Concomitant]

REACTIONS (2)
  - DYSPNOEA [None]
  - PHARMACEUTICAL PRODUCT COMPLAINT [None]
